FAERS Safety Report 9818382 (Version 1)
Quarter: 2014Q1

REPORT INFORMATION
  Report Type: Spontaneous
  Country: US (occurrence: US)
  Receive Date: 20140115
  Receipt Date: 20140115
  Transmission Date: 20141002
  Serious: No
  Sender: FDA-Public Use
  Company Number: US-PFIZER INC-2014007956

PATIENT
  Age: 74 Year
  Sex: Female

DRUGS (11)
  1. XELJANZ [Suspect]
     Indication: RHEUMATOID ARTHRITIS
     Dosage: 5 MG, 2X/DAY
     Route: 048
     Dates: start: 201302
  2. TYLENOL ARTHRITIS EXTENDED RELIEF [Concomitant]
     Dosage: UNK
  3. LOPID [Concomitant]
     Dosage: UNK
  4. NEXIUM [Concomitant]
     Dosage: UNK
  5. B COMPLEX [Concomitant]
     Dosage: UNK
  6. OMEGA 3 [Concomitant]
     Dosage: UNK
  7. VITAMIN B6 [Concomitant]
     Dosage: UNK
  8. BIOTIN [Concomitant]
     Dosage: UNK
  9. CALCIUM [Concomitant]
     Dosage: UNK
  10. TRAMADOL HYDROCHLORIDE [Concomitant]
     Dosage: UNK
  11. FOLIC ACID [Concomitant]

REACTIONS (1)
  - Arthralgia [Not Recovered/Not Resolved]
